FAERS Safety Report 6843913-3 (Version None)
Quarter: 2010Q3

REPORT INFORMATION
  Report Type: 
  Country: None (occurrence: None)
  Receive Date: 20100715
  Receipt Date: 20100709
  Transmission Date: 20110219
  Serious: Yes (Other)
  Sender: FDA-Public Use
  Company Number: MX-ELI_LILLY_AND_COMPANY-MX201004006336

PATIENT
  Age: 52 Year
  Sex: Female
  Weight: 91 kg

DRUGS (6)
  1. BYETTA [Suspect]
     Indication: DIABETES MELLITUS
     Dosage: 5 UG, 2/D
     Route: 058
     Dates: start: 20100327
  2. METFORMIN HCL [Concomitant]
     Dosage: 850 MG, UNKNOWN
  3. GLIMEPIRIDE [Concomitant]
     Dosage: 4 MG, UNKNOWN
  4. ZACTOS [Concomitant]
     Dosage: 15 MG, UNKNOWN
  5. PROPRANOLOL [Concomitant]
  6. NOVOTIRAL [Concomitant]

REACTIONS (10)
  - BLOOD GLUCOSE FLUCTUATION [None]
  - BLOOD GLUCOSE INCREASED [None]
  - COLITIS [None]
  - DEAFNESS BILATERAL [None]
  - DECREASED APPETITE [None]
  - DIZZINESS [None]
  - EUSTACHIAN TUBE DYSFUNCTION [None]
  - HYPERHIDROSIS [None]
  - NASAL SEPTUM DISORDER [None]
  - NAUSEA [None]
